FAERS Safety Report 5467651-7 (Version None)
Quarter: 2007Q3

REPORT INFORMATION
  Report Type: 
  Country: None (occurrence: None)
  Receive Date: 20070911
  Receipt Date: 20070626
  Transmission Date: 20080115
  Serious: No
  Sender: FDA-Public Use
  Company Number: WSDF_00654

PATIENT
  Age: 31 Year
  Sex: Male
  Weight: 113.3993 kg

DRUGS (3)
  1. WINRHO SDF [Suspect]
     Indication: IDIOPATHIC THROMBOCYTOPENIC PURPURA
     Dates: start: 20070625, end: 20070625
  2. TYLENOL (CAPLET) [Concomitant]
  3. BENADRYL [Concomitant]

REACTIONS (10)
  - BACK PAIN [None]
  - CHILLS [None]
  - CHROMATURIA [None]
  - HEADACHE [None]
  - INFLUENZA LIKE ILLNESS [None]
  - INFUSION SITE PAIN [None]
  - JAUNDICE [None]
  - MYALGIA [None]
  - OCULAR ICTERUS [None]
  - PYREXIA [None]
